FAERS Safety Report 9291216 (Version 1)
Quarter: 2012Q4

REPORT INFORMATION
  Report Type: Spontaneous
  Country: TR (occurrence: None)
  Receive Date: 20121123
  Receipt Date: 20121123
  Transmission Date: 20130627
  Serious: Yes (Death)
  Sender: FDA-Public Use
  Company Number: TR-AGG-12-2010-0034

PATIENT
  Age: 62 Year
  Sex: Female

DRUGS (2)
  1. TIROFIBAN [Suspect]
     Indication: ACUTE MYOCARDIAL INFARCTION
     Dosage: INTRAVENOUS (NOT OTHERWISE SPECIFIED)
     Route: 042
  2. HEPARIN [Suspect]
     Indication: ACUTE MYOCARDIAL INFARCTION

REACTIONS (10)
  - Pulmonary alveolar haemorrhage [None]
  - Catheter site haemorrhage [None]
  - Respiratory distress [None]
  - Haemoptysis [None]
  - Activated partial thromboplastin time prolonged [None]
  - Haemoglobin decreased [None]
  - Depressed level of consciousness [None]
  - Respiratory arrest [None]
  - Respiratory acidosis [None]
  - Lung infiltration [None]
